FAERS Safety Report 6054414-7 (Version None)
Quarter: 2009Q1

REPORT INFORMATION
  Report Type: 
  Country: None (occurrence: None)
  Receive Date: 20090123
  Receipt Date: 20090123
  Transmission Date: 20090719
  Serious: Yes (Hospitalization)
  Sender: FDA-Public Use
  Company Number: None

PATIENT
  Age: 55 Year
  Sex: Male
  Weight: 90.7194 kg

DRUGS (7)
  1. CARBOPLATIN [Suspect]
     Indication: METASTATIC NEOPLASM
     Dosage: 610 MG IV DAY 1
     Route: 042
  2. PACLITAXEL [Suspect]
     Indication: METASTATIC NEOPLASM
     Dosage: 132MG IV DAY 1
     Route: 042
  3. PERCOCET [Concomitant]
  4. LASIX [Concomitant]
  5. ALLOPURINOL [Concomitant]
  6. ALDACTONE [Concomitant]
  7. DECADRON [Concomitant]

REACTIONS (8)
  - ANAEMIA [None]
  - DEHYDRATION [None]
  - DIARRHOEA [None]
  - GASTROINTESTINAL HAEMORRHAGE [None]
  - HYPOTENSION [None]
  - NEUTROPENIA [None]
  - PNEUMONIA ASPIRATION [None]
  - THROMBOCYTOPENIA [None]
